APPROVED DRUG PRODUCT: GLYCOPYRROLATE
Active Ingredient: GLYCOPYRROLATE
Strength: 2MG
Dosage Form/Route: TABLET;ORAL
Application: A202675 | Product #002 | TE Code: AA
Applicant: AUROBINDO PHARMA LTD
Approved: Oct 30, 2018 | RLD: No | RS: No | Type: RX